FAERS Safety Report 8523234-3 (Version None)
Quarter: 2012Q3

REPORT INFORMATION
  Report Type: 
  Country: None (occurrence: None)
  Receive Date: 20120709
  Receipt Date: 20120702
  Transmission Date: 20120928
  Serious: Yes (Other)
  Sender: FDA-Public Use
  Company Number: 7144777

PATIENT
  Age: 38 Year
  Sex: Female

DRUGS (3)
  1. PEGYLATED INTERFERON ALPHA (INF-ALPHA)(PEGINTERFERON ALFA-2A) [Concomitant]
  2. LEVOTHYROXINE SODIUM [Suspect]
     Indication: HYPOTHYROIDISM
  3. RIBAVIRIN [Concomitant]

REACTIONS (6)
  - ENDOCRINE OPHTHALMOPATHY [None]
  - HYPERTHYROIDISM [None]
  - GOITRE [None]
  - DISEASE RECURRENCE [None]
  - GRANULOCYTOPENIA [None]
  - TRANSAMINASES INCREASED [None]
